FAERS Safety Report 7830700-2 (Version None)
Quarter: 2011Q4

REPORT INFORMATION
  Report Type: 
  Country: None (occurrence: None)
  Receive Date: 20111021
  Receipt Date: 20111006
  Transmission Date: 20120403
  Serious: Yes (Hospitalization)
  Sender: FDA-Public Use
  Company Number: TR-MUTUAL PHARMACEUTICAL COMPANY, INC.-CLHC20110035

PATIENT
  Age: 5 Year
  Sex: Female

DRUGS (1)
  1. COLCHICINE [Suspect]
     Route: 048

REACTIONS (4)
  - TOXICITY TO VARIOUS AGENTS [None]
  - ACCIDENTAL EXPOSURE [None]
  - WHITE BLOOD CELL COUNT INCREASED [None]
  - VOMITING [None]
